FAERS Safety Report 5866215-0 (Version None)
Quarter: 2008Q3

REPORT INFORMATION
  Report Type: 
  Country: None (occurrence: None)
  Receive Date: 20080829
  Receipt Date: 20080822
  Transmission Date: 20090109
  Serious: Yes (Hospitalization)
  Sender: FDA-Public Use
  Company Number: DE-ABBOTT-08P-062-0472044-00

PATIENT
  Sex: Male

DRUGS (2)
  1. HUMIRA [Suspect]
     Indication: ANKYLOSING SPONDYLITIS
     Route: 058
     Dates: start: 20080610
  2. ANALGESICS [Concomitant]
     Indication: ANKYLOSING SPONDYLITIS

REACTIONS (2)
  - ASTHENIA [None]
  - IRON DEFICIENCY [None]
